FAERS Safety Report 6222161-4 (Version None)
Quarter: 2009Q2

REPORT INFORMATION
  Report Type: 
  Country: None (occurrence: None)
  Receive Date: 20090611
  Receipt Date: 20090521
  Transmission Date: 20091009
  Serious: No
  Sender: FDA-Public Use
  Company Number: US-ROCHE-632203

PATIENT
  Sex: Male
  Weight: 25.4 kg

DRUGS (3)
  1. TAMIFLU [Suspect]
     Dosage: STRENGTH 12 MG/ ML, RECEIVED ONLY ONE DOSE ON 4 MAY 2009
     Route: 065
     Dates: start: 20090502, end: 20090504
  2. TAMIFLU [Suspect]
     Route: 065
     Dates: start: 20090506, end: 20090506
  3. TAMIFLU [Suspect]
     Dosage: RECEIVED ONE DOSE ON 6 MAY 2009
     Route: 065
     Dates: start: 20090504, end: 20090506

REACTIONS (2)
  - NO ADVERSE EVENT [None]
  - OVERDOSE [None]
